FAERS Safety Report 23595937 (Version 1)
Quarter: 2024Q1

REPORT INFORMATION
  Report Type: Spontaneous
  Country: US (occurrence: None)
  Receive Date: 20240304
  Receipt Date: 20240304
  Transmission Date: 20240410
  Serious: Yes (Hospitalization)
  Sender: FDA-Public Use
  Company Number: None

PATIENT
  Age: 57 Year
  Sex: Female

DRUGS (1)
  1. ICATIBANT [Suspect]
     Active Substance: ICATIBANT ACETATE
     Indication: Immunodeficiency
     Dosage: FREQUENCY : AS NEEDED;?
     Route: 058

REACTIONS (8)
  - Swelling [None]
  - Drug ineffective [None]
  - Hereditary angioedema [None]
  - Chest X-ray abnormal [None]
  - Arterial occlusive disease [None]
  - Venous occlusion [None]
  - Cerebrovascular accident [None]
  - Abdominal pain upper [None]

NARRATIVE: CASE EVENT DATE: 20240213
